FAERS Safety Report 6049052-6 (Version None)
Quarter: 2009Q1

REPORT INFORMATION
  Report Type: 
  Country: None (occurrence: None)
  Receive Date: 20090123
  Receipt Date: 20090112
  Transmission Date: 20090719
  Serious: Yes (Death)
  Sender: FDA-Public Use
  Company Number: US-ROCHE-607765

PATIENT
  Age: 56 Year
  Sex: Female

DRUGS (2)
  1. DIAZEPAM [Suspect]
     Indication: DRUG USE FOR UNKNOWN INDICATION
     Dosage: ROUTE; INGESTION.
     Route: 048
  2. LORTAB [Suspect]
     Indication: DRUG USE FOR UNKNOWN INDICATION
     Dosage: ROUTE; INGESTION.
     Route: 048

REACTIONS (1)
  - INTENTIONAL DRUG MISUSE [None]
